FAERS Safety Report 20739545 (Version 1)
Quarter: 2022Q2

REPORT INFORMATION
  Report Type: Report from Study
  Country: JP (occurrence: JP)
  Receive Date: 20220422
  Receipt Date: 20220422
  Transmission Date: 20220720
  Serious: Yes (Death, Other)
  Sender: FDA-Public Use
  Company Number: JP-GSKJP-JP2022JPN066550AA

PATIENT
  Age: 9 Decade
  Sex: Male

DRUGS (7)
  1. LAMOTRIGINE [Suspect]
     Active Substance: LAMOTRIGINE
     Indication: Epilepsy
     Dosage: UNK
  2. VIMPAT [Suspect]
     Active Substance: LACOSAMIDE
     Indication: Epilepsy
     Dosage: 200 MG/DAY
  3. VIMPAT [Suspect]
     Active Substance: LACOSAMIDE
     Dosage: UNK
  4. VIMPAT [Suspect]
     Active Substance: LACOSAMIDE
     Dosage: UNK (DOSE REDUCED)
  5. RISPERIDONE [Suspect]
     Active Substance: RISPERIDONE
     Dosage: UNK
  6. TELMISARTAN [Suspect]
     Active Substance: TELMISARTAN
     Dosage: UNK
  7. FERROUS SULFATE MONOHYDRATE [Suspect]
     Active Substance: FERROUS SULFATE MONOHYDRATE
     Dosage: UNK

REACTIONS (4)
  - Cardiac failure [Fatal]
  - Cardio-respiratory arrest [Unknown]
  - Somnolence [Unknown]
  - Therapeutic response decreased [Unknown]
